FAERS Safety Report 10143061 (Version 1)
Quarter: 2014Q2

REPORT INFORMATION
  Report Type: Spontaneous
  Country: BR (occurrence: None)
  Receive Date: 20140428
  Receipt Date: 20140428
  Transmission Date: 20141212
  Serious: Yes (Hospitalization, Other)
  Sender: FDA-Public Use
  Company Number: AUR-APL-2014-05032

PATIENT
  Age: 64 Year
  Sex: Female
  Weight: 75 kg

DRUGS (12)
  1. ATENOLOL (ATENOLOL) [Suspect]
     Indication: HYPERTENSION
     Route: 048
     Dates: start: 2014, end: 2014
  2. HYDROCHLOROTHIAZIDE (HYDROCHLOROTHIAZIDE) [Suspect]
     Indication: HYPERTENSION
     Route: 048
     Dates: start: 1996
  3. HYDROCHLOROTHIAZIDE (HYDROCHLOROTHIAZIDE) [Suspect]
     Indication: RENAL DISORDER
     Route: 048
     Dates: start: 1996
  4. ATORVASTATIN CALCIUM (ATORVASTATIN CALCIUM) [Suspect]
     Indication: BLOOD CHOLESTEROL INCREASED
     Route: 048
     Dates: end: 201312
  5. OMEPRAZOLE (OMEPRAZOLE) [Suspect]
     Indication: PRODUCT USED FOR UNKNOWN INDICATION
     Route: 048
  6. NEXIUM (ESOMEPRAZOLE MAGNESIUM) [Suspect]
     Indication: HELICOBACTER INFECTION
     Dosage: MUPS
     Route: 048
     Dates: start: 20140408, end: 20140408
  7. NEXIUM (ESOMEPRAZOLE MAGNESIUM) [Suspect]
     Indication: HIATUS HERNIA
     Dosage: MUPS
     Route: 048
     Dates: start: 20140408, end: 20140408
  8. NEXIUM (ESOMEPRAZOLE MAGNESIUM) [Suspect]
     Indication: ULCER
     Dosage: MUPS
     Route: 048
     Dates: start: 20140408, end: 20140408
  9. NEXIUM (ESOMEPRAZOLE MAGNESIUM) [Suspect]
     Indication: GASTRITIS
     Dosage: MUPS
     Route: 048
     Dates: start: 20140408, end: 20140408
  10. DIGEPLUS (DIGEPLUS) [Concomitant]
  11. GAVISCON (GAVISCON) [Concomitant]
  12. LOSARTAN (LOSARTAN) [Concomitant]

REACTIONS (17)
  - Abdominal pain upper [None]
  - Ulcer [None]
  - Hiatus hernia [None]
  - Gastritis [None]
  - Oesophagitis [None]
  - Helicobacter infection [None]
  - Stomach mass [None]
  - Dysgeusia [None]
  - Nausea [None]
  - Decreased appetite [None]
  - Cold sweat [None]
  - Faeces discoloured [None]
  - Therapy cessation [None]
  - Blood cholesterol increased [None]
  - Drug ineffective [None]
  - Off label use [None]
  - Blood pressure increased [None]
